FAERS Safety Report 19653465 (Version 1)
Quarter: 2021Q3

REPORT INFORMATION
  Report Type: Spontaneous
  Country: DE (occurrence: DE)
  Receive Date: 20210804
  Receipt Date: 20210804
  Transmission Date: 20211014
  Serious: Yes (Other)
  Sender: FDA-Public Use
  Company Number: DE-AUROBINDO-AUR-APL-2021-032900

PATIENT
  Age: 68 Year
  Sex: Female

DRUGS (5)
  1. IRINOTECAN [Concomitant]
     Active Substance: IRINOTECAN
     Indication: DUCTAL ADENOCARCINOMA OF PANCREAS
     Dosage: UNK UNK, 2 CYCLICAL
     Route: 065
     Dates: start: 201807
  2. FLUOROURACIL. [Concomitant]
     Active Substance: FLUOROURACIL
     Indication: DUCTAL ADENOCARCINOMA OF PANCREAS
     Dosage: UNK UNK, 5 CYCLE
     Route: 065
     Dates: start: 201807
  3. OXALIPLATIN. [Suspect]
     Active Substance: OXALIPLATIN
     Indication: DUCTAL ADENOCARCINOMA OF PANCREAS
     Dosage: UNK UNK, 5 CYCLE
     Route: 065
     Dates: start: 201807
  4. IRINOTECAN [Concomitant]
     Active Substance: IRINOTECAN
     Dosage: UNK UNK, 3 CYCLE, REDUCED TO 75% OF THE INITIAL DOSE
     Route: 065
     Dates: start: 2018
  5. FOLINIC ACID [Concomitant]
     Active Substance: LEUCOVORIN
     Indication: DUCTAL ADENOCARCINOMA OF PANCREAS
     Dosage: UNK UNK, 5 CYCLE
     Route: 065
     Dates: start: 201807

REACTIONS (2)
  - Dysaesthesia pharynx [Unknown]
  - Polyneuropathy [Unknown]

NARRATIVE: CASE EVENT DATE: 2018
